FAERS Safety Report 19727456 (Version 1)
Quarter: 2021Q3

REPORT INFORMATION
  Report Type: Spontaneous
  Country: DE (occurrence: DE)
  Receive Date: 20210819
  Receipt Date: 20210819
  Transmission Date: 20211014
  Serious: Yes (Death)
  Sender: FDA-Public Use
  Company Number: NVSC2021DE186426

PATIENT
  Sex: Female

DRUGS (12)
  1. TRAMETINIB [Suspect]
     Active Substance: TRAMETINIB
     Indication: CARDIAC HYPERTROPHY
     Dosage: 0.03 MG/KG, QD
     Route: 065
  2. TRAMETINIB [Suspect]
     Active Substance: TRAMETINIB
     Indication: CARDIAC FAILURE
  3. TRAMETINIB [Suspect]
     Active Substance: TRAMETINIB
     Indication: ARRHYTHMIA SUPRAVENTRICULAR
  4. TRAMETINIB [Suspect]
     Active Substance: TRAMETINIB
     Indication: GENERALISED OEDEMA
  5. SIROLIMUS. [Suspect]
     Active Substance: SIROLIMUS
     Indication: ARRHYTHMIA SUPRAVENTRICULAR
  6. TRAMETINIB [Suspect]
     Active Substance: TRAMETINIB
     Indication: HAEMODYNAMIC INSTABILITY
  7. SIROLIMUS. [Suspect]
     Active Substance: SIROLIMUS
     Indication: CARDIAC HYPERTROPHY
     Dosage: 1.5 MG/M2
     Route: 065
  8. SIROLIMUS. [Suspect]
     Active Substance: SIROLIMUS
     Indication: CARDIAC FAILURE
  9. SIROLIMUS. [Suspect]
     Active Substance: SIROLIMUS
     Indication: GENERALISED OEDEMA
  10. TRAMETINIB [Suspect]
     Active Substance: TRAMETINIB
     Indication: LUNG ASSIST DEVICE THERAPY
  11. SIROLIMUS. [Suspect]
     Active Substance: SIROLIMUS
     Indication: HAEMODYNAMIC INSTABILITY
  12. SIROLIMUS. [Suspect]
     Active Substance: SIROLIMUS
     Indication: LUNG ASSIST DEVICE THERAPY

REACTIONS (2)
  - Product use in unapproved indication [Unknown]
  - Death [Fatal]
